FAERS Safety Report 5352053-4 (Version None)
Quarter: 2007Q2

REPORT INFORMATION
  Report Type: 
  Country: None (occurrence: None)
  Receive Date: 20070611
  Receipt Date: 20070529
  Transmission Date: 20071010
  Serious: Yes (Hospitalization)
  Sender: FDA-Public Use
  Company Number: PHBS2007CA09025

PATIENT
  Age: 26 Year
  Sex: Male

DRUGS (6)
  1. CYCLOSPORINE [Suspect]
     Indication: HEART TRANSPLANT
     Route: 065
  2. AZATHIOPRINE [Concomitant]
     Indication: HEART TRANSPLANT
     Route: 065
  3. PREDNISONE TAB [Concomitant]
     Indication: HEART TRANSPLANT
     Route: 065
  4. SIROLIMUS [Concomitant]
     Indication: HEART TRANSPLANT
     Route: 065
  5. CEPHALEXIN [Concomitant]
     Indication: ACNE
  6. CAPTOPRIL [Concomitant]
     Indication: GLOMERULONEPHROPATHY
     Dosage: 6.25 MG, TID
     Route: 048

REACTIONS (17)
  - BLOOD CREATININE INCREASED [None]
  - BLOOD UREA INCREASED [None]
  - FOCAL GLOMERULOSCLEROSIS [None]
  - GLOMERULONEPHROPATHY [None]
  - GLOMERULOSCLEROSIS [None]
  - HYPERLIPIDAEMIA [None]
  - HYPERTENSION [None]
  - KIDNEY FIBROSIS [None]
  - NEPHROPATHY TOXIC [None]
  - PARVOVIRUS B19 SEROLOGY POSITIVE [None]
  - PERITONEAL DIALYSIS [None]
  - PROTEINURIA [None]
  - RENAL ARTERIOSCLEROSIS [None]
  - RENAL ATROPHY [None]
  - RENAL FAILURE CHRONIC [None]
  - RENAL TRANSPLANT [None]
  - RENAL TUBULAR DISORDER [None]
